FAERS Safety Report 9496755 (Version 1)
Quarter: 2013Q3

REPORT INFORMATION
  Report Type: Spontaneous
  Country: PL (occurrence: None)
  Receive Date: 20130830
  Receipt Date: 20130830
  Transmission Date: 20140515
  Serious: Yes (Other)
  Sender: FDA-Public Use
  Company Number: 2013AP007552

PATIENT
  Age: 32 Year
  Sex: Male

DRUGS (12)
  1. LEVETIRACETAM [Suspect]
     Indication: EPILEPSY
  2. TOPIRAMATE [Suspect]
     Indication: EPILEPSY
  3. CARBAMAZEPINE [Suspect]
     Indication: EPILEPSY
  4. VALPROIC ACID [Suspect]
     Indication: EPILEPSY
  5. LAMOTRIGINE [Suspect]
     Indication: EPILEPSY
  6. TIAGABINE [Suspect]
     Indication: EPILEPSY
  7. VIGABATRIN [Suspect]
     Indication: EPILEPSY
  8. OXCARBAZEPINE [Suspect]
     Indication: EPILEPSY
  9. GABAPENTIN [Suspect]
     Indication: EPILEPSY
  10. PHENOBARBITAL [Suspect]
     Indication: EPILEPSY
  11. CLONAZEPAM [Suspect]
     Indication: EPILEPSY
  12. LACOSAMIDE [Concomitant]

REACTIONS (5)
  - Hypoaesthesia [None]
  - Dizziness [None]
  - Diplopia [None]
  - Drug effect decreased [None]
  - Drug ineffective [None]
